FAERS Safety Report 9060827 (Version 1)
Quarter: 2013Q1

REPORT INFORMATION
  Report Type: Spontaneous
  Country: US (occurrence: US)
  Receive Date: 20130204
  Receipt Date: 20130204
  Transmission Date: 20140127
  Serious: Yes (Disabling, Other)
  Sender: FDA-Public Use
  Company Number: US-009507513-1301XAA004096

PATIENT
  Age: 37 Year
  Sex: Female

DRUGS (7)
  1. SINGULAIR [Suspect]
     Indication: ASTHMA
     Dosage: 10 MG
     Route: 048
  2. ALBUTEROL SULFATE [Concomitant]
     Dosage: AUTOHALER
  3. CITALOPRAM [Concomitant]
  4. ATROVENT [Concomitant]
  5. SERETIDE [Suspect]
  6. XOLAIR [Suspect]
     Dosage: 300 MG, QM
     Route: 058
  7. IPRATROPIUM BROMIDE [Suspect]

REACTIONS (7)
  - Headache [Unknown]
  - Transient ischaemic attack [Unknown]
  - Sensory disturbance [Unknown]
  - Paraesthesia [Unknown]
  - Nervous system disorder [Unknown]
  - Hemiparesis [Unknown]
  - Dysaesthesia [Unknown]
